FAERS Safety Report 5559337-5 (Version None)
Quarter: 2007Q4

REPORT INFORMATION
  Report Type: 
  Country: None (occurrence: None)
  Receive Date: 20071214
  Receipt Date: 20071106
  Transmission Date: 20080405
  Serious: No
  Sender: FDA-Public Use
  Company Number: US-ABBOTT-07P-163-0419303-00

PATIENT
  Sex: Female
  Weight: 56.75 kg

DRUGS (7)
  1. HUMIRA [Suspect]
     Indication: ANKYLOSING SPONDYLITIS
     Route: 058
     Dates: start: 20061001, end: 20070914
  2. HUMIRA [Suspect]
     Route: 058
     Dates: start: 20071012, end: 20071109
  3. HUMIRA [Suspect]
     Route: 058
     Dates: end: 20071109
  4. HUMIRA [Suspect]
     Dosage: PEN
     Route: 058
     Dates: start: 20071109
  5. HUMIRA [Suspect]
     Indication: PSORIATIC ARTHROPATHY
     Route: 058
     Dates: start: 20071109
  6. HUMIRA [Suspect]
     Dates: start: 20070930, end: 20071109
  7. METHOTREXATE [Concomitant]
     Indication: DRUG USE FOR UNKNOWN INDICATION

REACTIONS (7)
  - CHILLS [None]
  - NASAL CONGESTION [None]
  - PSORIATIC ARTHROPATHY [None]
  - PYREXIA [None]
  - SINUSITIS [None]
  - SOMNOLENCE [None]
  - VIRAL INFECTION [None]
